FAERS Safety Report 7098095-2 (Version None)
Quarter: 2010Q4

REPORT INFORMATION
  Report Type: 
  Country: None (occurrence: None)
  Receive Date: 20101112
  Receipt Date: 20101103
  Transmission Date: 20110411
  Serious: Yes (Other)
  Sender: FDA-Public Use
  Company Number: CA-ASTRAZENECA-2010SE50996

PATIENT
  Age: 50 Year
  Sex: Male

DRUGS (2)
  1. PULMICORT [Suspect]
     Indication: ASTHMA
     Dosage: 200 MCG, 2 PUFFS BID
     Route: 055
     Dates: start: 20090601
  2. PULMICORT [Suspect]
     Route: 055

REACTIONS (2)
  - BONE PAIN [None]
  - INSOMNIA [None]
